FAERS Safety Report 8074380-2 (Version None)
Quarter: 2012Q1

REPORT INFORMATION
  Report Type: 
  Country: None (occurrence: None)
  Receive Date: 20120126
  Receipt Date: 20120117
  Transmission Date: 20120608
  Serious: Yes (Life-Threatening, Hospitalization, Disabling)
  Sender: FDA-Public Use
  Company Number: CA-GLAXOSMITHKLINE-A0961832A

PATIENT
  Age: 67 Year
  Sex: Male
  Weight: 90 kg

DRUGS (10)
  1. FLOMAX [Concomitant]
  2. BISOPROLOL FUMARATE [Concomitant]
  3. CRESTOR [Concomitant]
  4. ASAPHEN [Concomitant]
  5. AVANDIA [Suspect]
     Indication: PRODUCT USED FOR UNKNOWN INDICATION
     Dosage: 8MG PER DAY
     Route: 065
  6. AMLODIPINE [Concomitant]
  7. VITAMIN B-12 [Concomitant]
  8. METFORMIN HCL [Concomitant]
  9. FUROSEMIDE [Concomitant]
  10. RAMIPRIL [Concomitant]

REACTIONS (2)
  - CARDIAC DISORDER [None]
  - PULMONARY OEDEMA [None]
